FAERS Safety Report 7791382-1 (Version None)
Quarter: 2011Q4

REPORT INFORMATION
  Report Type: 
  Country: None (occurrence: None)
  Receive Date: 20111003
  Receipt Date: 20110921
  Transmission Date: 20120403
  Serious: No
  Sender: FDA-Public Use
  Company Number: CH-ELI_LILLY_AND_COMPANY-CH201108009480

PATIENT
  Age: 77 Year
  Sex: Male
  Weight: 65 kg

DRUGS (6)
  1. CYMBALTA [Suspect]
     Dosage: 30 MG, QD
     Route: 048
     Dates: start: 20101001, end: 20110401
  2. CYMBALTA [Suspect]
     Dosage: 60 MG, QD
     Route: 048
     Dates: start: 20110401, end: 20110825
  3. CYMBALTA [Suspect]
     Dosage: 15 MG, QD
     Route: 048
     Dates: start: 20110826
  4. ZYPREXA [Suspect]
     Dosage: 2.5 MG, QD
     Route: 048
     Dates: end: 20110401
  5. LORAZEPAM [Concomitant]
     Dosage: 1 MG, QD WHEN NEEDED
  6. CLOZAPINE [Concomitant]
     Dosage: 75 MG, QD
     Route: 048
     Dates: start: 20110520

REACTIONS (2)
  - FULL BLOOD COUNT ABNORMAL [None]
  - SINUS TACHYCARDIA [None]
